FAERS Safety Report 7150391-6 (Version None)
Quarter: 2010Q4

REPORT INFORMATION
  Report Type: 
  Country: None (occurrence: None)
  Receive Date: 20101123
  Receipt Date: 20101109
  Transmission Date: 20110411
  Serious: Yes (Other)
  Sender: FDA-Public Use
  Company Number: 2010MA004373

PATIENT
  Age: 44 Year
  Sex: Female

DRUGS (1)
  1. TRIAMCINOLONE ACETONIDE [Suspect]
     Dosage: 1 ML

REACTIONS (4)
  - CONJUNCTIVAL HAEMORRHAGE [None]
  - DISEASE RECURRENCE [None]
  - ECCHYMOSIS [None]
  - SCLERITIS [None]
